FAERS Safety Report 6585047-1 (Version None)
Quarter: 2010Q1

REPORT INFORMATION
  Report Type: 
  Country: None (occurrence: None)
  Receive Date: 20100212
  Receipt Date: 20100205
  Transmission Date: 20100710
  Serious: Yes (Death)
  Sender: FDA-Public Use
  Company Number: DL2009499

PATIENT
  Age: 21 Year
  Sex: Female
  Weight: 43.0917 kg

DRUGS (2)
  1. MIFEPRISTONE (MIFEPREX) [Suspect]
     Indication: ABORTION INDUCED
     Dosage: 200 MG, ORAL
     Route: 048
     Dates: start: 20090716
  2. MISOPROSTOL [Suspect]
     Dosage: 800 MCG, VAGINAL
     Route: 067
     Dates: start: 20090718

REACTIONS (6)
  - ABDOMINAL PAIN [None]
  - DEATH [None]
  - MUSCLE SPASMS [None]
  - NAUSEA [None]
  - SEPSIS [None]
  - VOMITING [None]
